FAERS Safety Report 7071725-7 (Version None)
Quarter: 2010Q4

REPORT INFORMATION
  Report Type: 
  Country: None (occurrence: None)
  Receive Date: 20101029
  Receipt Date: 20091013
  Transmission Date: 20110411
  Serious: No
  Sender: FDA-Public Use
  Company Number: A0811595A

PATIENT
  Age: 56 Year
  Sex: Male

DRUGS (7)
  1. ADVAIR DISKUS 100/50 [Suspect]
     Indication: ASTHMA
     Dosage: 2PUFF PER DAY
     Route: 055
     Dates: start: 20070101
  2. CRESTOR [Concomitant]
  3. ALPRAZOLAM [Concomitant]
  4. UNSPECIFIED MEDICATION [Concomitant]
  5. HYDROCHLOROTHIAZIDE [Concomitant]
  6. MULTI-VITAMIN [Concomitant]
  7. CALCIUM + D [Concomitant]

REACTIONS (5)
  - BLOOD PRESSURE INCREASED [None]
  - HEADACHE [None]
  - HEART RATE INCREASED [None]
  - HEART RATE IRREGULAR [None]
  - NERVOUSNESS [None]
